FAERS Safety Report 5810462-0 (Version None)
Quarter: 2008Q3

REPORT INFORMATION
  Report Type: 
  Country: None (occurrence: None)
  Receive Date: 20080715
  Receipt Date: 20080703
  Transmission Date: 20090109
  Serious: Yes (Other)
  Sender: FDA-Public Use
  Company Number: US-PFIZER INC-2008047353

PATIENT
  Sex: Female
  Weight: 68 kg

DRUGS (2)
  1. DILANTIN [Suspect]
     Indication: CONVULSION
     Dosage: DAILY DOSE:500MG
     Dates: start: 20051005, end: 20080101
  2. DILANTIN [Suspect]
     Indication: PROPHYLAXIS

REACTIONS (2)
  - BALANCE DISORDER [None]
  - FEELING ABNORMAL [None]
